FAERS Safety Report 10574297 (Version 1)
Quarter: 2014Q4

REPORT INFORMATION
  Report Type: Spontaneous
  Country: US (occurrence: US)
  Receive Date: 20141110
  Receipt Date: 20141110
  Transmission Date: 20150529
  Serious: No
  Sender: FDA-Public Use
  Company Number: US-GALDERMA-US13003659

PATIENT
  Age: 50 Year
  Sex: Female

DRUGS (4)
  1. MINOCYCLINE [Concomitant]
     Active Substance: MINOCYCLINE\MINOCYCLINE HYDROCHLORIDE
     Indication: ACNE
     Dosage: 75 MG
     Route: 048
  2. CLOBEX [Suspect]
     Active Substance: CLOBETASOL PROPIONATE
     Indication: PSORIASIS
     Dosage: 0.05%
     Route: 061
     Dates: start: 201308
  3. HUMIRA [Suspect]
     Active Substance: ADALIMUMAB
     Dosage: 40 MG
     Route: 030
     Dates: start: 201308
  4. TACLONEX [Suspect]
     Active Substance: BETAMETHASONE DIPROPIONATE\CALCIPOTRIENE\CALCIPOTRIENE HYDRATE
     Indication: PSORIASIS
     Route: 061
     Dates: start: 201308

REACTIONS (3)
  - Skin atrophy [Unknown]
  - Psoriasis [Unknown]
  - Skin fissures [Unknown]

NARRATIVE: CASE EVENT DATE: 20130820
